FAERS Safety Report 5213143-X (Version None)
Quarter: 2007Q1

REPORT INFORMATION
  Report Type: 
  Country: None (occurrence: None)
  Receive Date: 20070118
  Receipt Date: 20070118
  Transmission Date: 20070707
  Serious: Yes (Hospitalization)
  Sender: FDA-Public Use
  Company Number: None

PATIENT
  Sex: Female
  Weight: 110 kg

DRUGS (8)
  1. CYCLOPHOSPHAMIDE [Suspect]
     Dosage: 1100 MG
     Dates: end: 20061220
  2. TAXOTERE [Suspect]
     Dosage: 166 MG
     Dates: end: 20061220
  3. DOXORUBICIN HYDROCHLORIDE [Suspect]
     Dosage: 111 MG
     Dates: end: 20061220
  4. DECADRON [Concomitant]
  5. DIPHENHYDRAMINE HCL [Concomitant]
  6. NEULASTA [Concomitant]
  7. ONDANSETRON [Concomitant]
  8. RANITIDINE [Concomitant]

REACTIONS (19)
  - ABDOMINAL PAIN [None]
  - ACUTE RESPIRATORY DISTRESS SYNDROME [None]
  - ANOXIC ENCEPHALOPATHY [None]
  - BLOOD PRESSURE DIASTOLIC DECREASED [None]
  - CARDIAC ARREST [None]
  - CORONARY ARTERY DISEASE [None]
  - DIARRHOEA [None]
  - ELECTROMECHANICAL DISSOCIATION [None]
  - HAEMOGLOBIN ABNORMAL [None]
  - INTESTINAL INFARCTION [None]
  - ISCHAEMIC HEPATITIS [None]
  - PLATELET COUNT DECREASED [None]
  - PULMONARY OEDEMA [None]
  - RENAL FAILURE [None]
  - RESPIRATORY ARREST [None]
  - RESPIRATORY RATE INCREASED [None]
  - SEPSIS SYNDROME [None]
  - TACHYCARDIA [None]
  - WHITE BLOOD CELL COUNT DECREASED [None]
